FAERS Safety Report 21713522 (Version 1)
Quarter: 2022Q4

REPORT INFORMATION
  Report Type: Spontaneous
  Country: IT (occurrence: IT)
  Receive Date: 20221212
  Receipt Date: 20221212
  Transmission Date: 20230113
  Serious: Yes (Hospitalization)
  Sender: FDA-Public Use
  Company Number: None

PATIENT
  Age: 62 Year
  Sex: Male

DRUGS (6)
  1. CLOPIDOGREL [Interacting]
     Active Substance: CLOPIDOGREL BISULFATE
     Indication: Product used for unknown indication
  2. ELIQUIS [Interacting]
     Active Substance: APIXABAN
     Indication: Atrial fibrillation
     Dosage: LAST ADMINISTRATION 08/10/22 AT 9.30
     Dates: end: 20221008
  3. SACUBITRIL\VALSARTAN [Concomitant]
     Active Substance: SACUBITRIL\VALSARTAN
  4. AMIODARONE [Concomitant]
     Active Substance: AMIODARONE
  5. BISOPROLOL [Concomitant]
     Active Substance: BISOPROLOL
  6. EZETIMIBE\ROSUVASTATIN [Concomitant]
     Active Substance: EZETIMIBE\ROSUVASTATIN

REACTIONS (4)
  - Ecchymosis [Recovering/Resolving]
  - Oedema [Recovering/Resolving]
  - Haemorrhage [Recovered/Resolved]
  - Drug interaction [Unknown]
